FAERS Safety Report 6405683-2 (Version None)
Quarter: 2009Q4

REPORT INFORMATION
  Report Type: 
  Country: None (occurrence: None)
  Receive Date: 20091019
  Receipt Date: 20091012
  Transmission Date: 20100525
  Serious: Yes (Other)
  Sender: FDA-Public Use
  Company Number: D0063191A

PATIENT
  Sex: Female

DRUGS (1)
  1. ARIXTRA [Suspect]
     Dosage: 2.5ML UNKNOWN
     Route: 065

REACTIONS (6)
  - ACNE [None]
  - ANGINA PECTORIS [None]
  - DEPRESSED MOOD [None]
  - FEAR [None]
  - HEADACHE [None]
  - URTICARIA [None]
